FAERS Safety Report 8382236-0 (Version None)
Quarter: 2012Q2

REPORT INFORMATION
  Report Type: 
  Country: None (occurrence: None)
  Receive Date: 20120524
  Receipt Date: 20120518
  Transmission Date: 20120825
  Serious: No
  Sender: FDA-Public Use
  Company Number: US-PFIZER INC-2012121447

PATIENT
  Sex: Female

DRUGS (1)
  1. IBUPROFEN (ADVIL) [Suspect]
     Dosage: UNK

REACTIONS (8)
  - NAUSEA [None]
  - ABDOMINAL PAIN [None]
  - BREAST PAIN [None]
  - ABDOMINAL PAIN UPPER [None]
  - ABDOMINAL DISCOMFORT [None]
  - ORAL DISORDER [None]
  - MUSCULOSKELETAL CHEST PAIN [None]
  - BACK PAIN [None]
